FAERS Safety Report 21746615 (Version 3)
Quarter: 2023Q1

REPORT INFORMATION
  Report Type: Report from Study
  Country: US (occurrence: US)
  Receive Date: 20221219
  Receipt Date: 20230120
  Transmission Date: 20230418
  Serious: No
  Sender: FDA-Public Use
  Company Number: US-ABBVIE-4238484

PATIENT
  Sex: Female

DRUGS (2)
  1. HUMIRA [Suspect]
     Active Substance: ADALIMUMAB
     Indication: Product used for unknown indication
     Dosage: FORM STRENGTH: 40 MILLIGRAM?LAST ADMIN DATE- 2022
     Route: 058
     Dates: start: 202208
  2. Remicaide IV Infusion [Concomitant]
     Indication: Product used for unknown indication
     Dates: start: 20221212

REACTIONS (1)
  - Drug ineffective [Unknown]
